FAERS Safety Report 7327137-1 (Version None)
Quarter: 2011Q1

REPORT INFORMATION
  Report Type: 
  Country: None (occurrence: None)
  Receive Date: 20110218
  Receipt Date: 20110209
  Transmission Date: 20110831
  Serious: Yes (Disabling, Other)
  Sender: FDA-Public Use
  Company Number: TPA2011A00555

PATIENT
  Age: 53 Year
  Sex: Female

DRUGS (1)
  1. PREVACID [Suspect]
     Indication: GASTROOESOPHAGEAL REFLUX DISEASE
     Dosage: 30 MG, 1 IN 1 D/SEVERAL YEARS AGO, 15 MG, 1 IN 1 D

REACTIONS (6)
  - ANKLE FRACTURE [None]
  - ARTHRALGIA [None]
  - DECREASED APPETITE [None]
  - TRAUMATIC ARTHRITIS [None]
  - FALL [None]
  - LOSS OF EMPLOYMENT [None]
